FAERS Safety Report 4842355-X (Version None)
Quarter: 2005Q4

REPORT INFORMATION
  Report Type: 
  Country: None (occurrence: None)
  Receive Date: 20051123
  Receipt Date: 20051116
  Transmission Date: 20060501
  Serious: Yes (Hospitalization)
  Sender: FDA-Public Use
  Company Number: CIP05002679

PATIENT
  Age: 67 Year
  Sex: Female

DRUGS (3)
  1. ACTONEL [Suspect]
     Indication: OSTEOPOROSIS
  2. METHIMAZOLE [Concomitant]
  3. METOPROLOL (METOPROLOL) [Concomitant]

REACTIONS (8)
  - DYSKINESIA [None]
  - HYPERTHYROIDISM [None]
  - HYPOAESTHESIA ORAL [None]
  - HYPOCALCAEMIA [None]
  - HYPOPARATHYROIDISM [None]
  - MUSCLE TWITCHING [None]
  - POST PROCEDURAL COMPLICATION [None]
  - TOXIC NODULAR GOITRE [None]
